FAERS Safety Report 24584344 (Version 1)
Quarter: 2024Q4

REPORT INFORMATION
  Report Type: Spontaneous
  Country: US (occurrence: US)
  Receive Date: 20241106
  Receipt Date: 20241106
  Transmission Date: 20250115
  Serious: No
  Sender: INCYTE
  Company Number: US-INCYTE CORPORATION-2024IN011437

PATIENT

DRUGS (2)
  1. JAKAFI [Suspect]
     Active Substance: RUXOLITINIB
     Indication: Myeloproliferative neoplasm
     Dosage: 15 MILLIGRAM, BID
     Route: 048
  2. IMATINIB [Concomitant]
     Active Substance: IMATINIB
     Indication: Myeloproliferative neoplasm
     Dosage: UNK
     Route: 065

REACTIONS (1)
  - Off label use [Unknown]
